FAERS Safety Report 23501068 (Version 2)
Quarter: 2024Q1

REPORT INFORMATION
  Report Type: Spontaneous
  Country: US (occurrence: US)
  Receive Date: 20240208
  Receipt Date: 20240213
  Transmission Date: 20240409
  Serious: Yes (Hospitalization, Other)
  Sender: FDA-Public Use
  Company Number: US-KARYOPHARM-2024KPT000080

PATIENT

DRUGS (12)
  1. XPOVIO [Suspect]
     Active Substance: SELINEXOR
     Indication: Plasma cell myeloma
     Dosage: 60 MG, WEEKLY
     Route: 048
  2. PROZAC [Concomitant]
     Active Substance: FLUOXETINE HYDROCHLORIDE
  3. DAPSONE [Concomitant]
     Active Substance: DAPSONE
  4. FOLIC ACID [Concomitant]
     Active Substance: FOLIC ACID
  5. ACYCLOVIR [Concomitant]
     Active Substance: ACYCLOVIR
  6. LEVOTHYROXINE [Concomitant]
     Active Substance: LEVOTHYROXINE\LEVOTHYROXINE SODIUM
  7. CIALIS [Concomitant]
     Active Substance: TADALAFIL
  8. ONDANSETRON [Concomitant]
     Active Substance: ONDANSETRON
  9. DEXAMETHASONE [Concomitant]
     Active Substance: DEXAMETHASONE
  10. SILODOSIN [Concomitant]
     Active Substance: SILODOSIN
  11. VANCOMYCIN [Concomitant]
     Active Substance: VANCOMYCIN
  12. ALFUZOSIN [Concomitant]
     Active Substance: ALFUZOSIN

REACTIONS (4)
  - Influenza [Not Recovered/Not Resolved]
  - Abscess [Unknown]
  - Spinal cord infection [Unknown]
  - Pneumonia [Unknown]

NARRATIVE: CASE EVENT DATE: 20240201
